FAERS Safety Report 13999476 (Version 1)
Quarter: 2017Q3

REPORT INFORMATION
  Report Type: Report from Study
  Country: MX (occurrence: MX)
  Receive Date: 20170922
  Receipt Date: 20170922
  Transmission Date: 20171128
  Serious: Yes (Other)
  Sender: FDA-Public Use
  Company Number: MX-UCBSA-2017037589

PATIENT
  Age: 3 Month
  Sex: Female
  Weight: 11 kg

DRUGS (4)
  1. FRISIUM [Concomitant]
     Active Substance: CLOBAZAM
     Indication: INFANTILE SPASMS
     Dosage: 1/2 OF A TABLET/24 HRS
     Dates: start: 20170603
  2. DEPAKENE [Concomitant]
     Active Substance: VALPROIC ACID
     Indication: INFANTILE SPASMS
     Dosage: 250MG (2.5ML/8 HRS)
     Dates: start: 2006
  3. LEVETIRACETAM. [Suspect]
     Active Substance: LEVETIRACETAM
     Indication: INFANTILE SPASMS
     Dosage: 100MG/ML (UNKNOWN DOSE AND FREQUENCY)
     Route: 048
     Dates: start: 20151215, end: 201602
  4. LEVETIRACETAM. [Suspect]
     Active Substance: LEVETIRACETAM
     Indication: OFF LABEL USE

REACTIONS (2)
  - Psychomotor retardation [Recovering/Resolving]
  - Off label use [Unknown]

NARRATIVE: CASE EVENT DATE: 20151215
